FAERS Safety Report 9010840 (Version 5)
Quarter: 2013Q4

REPORT INFORMATION
  Report Type: Report from Study
  Country: US (occurrence: US)
  Receive Date: 20130109
  Receipt Date: 20131107
  Transmission Date: 20140711
  Serious: Yes (Hospitalization)
  Sender: FDA-Public Use
  Company Number: US-BAYER-2012-066763

PATIENT
  Age: 53 Year
  Sex: Female
  Weight: 91.11 kg

DRUGS (16)
  1. REGORAFENIB [Suspect]
     Indication: COLON CANCER
     Dosage: 160 MG, UNK
     Route: 048
     Dates: start: 20120517, end: 20120607
  2. ROXICODONE [Concomitant]
     Indication: BACK PAIN
     Dosage: DAILY DOSE 5 MG
     Route: 048
  3. COMPAZINE [Concomitant]
     Indication: NAUSEA
     Dosage: DAILY DOSE 10 MG
     Route: 048
  4. SLOW-MAG [Concomitant]
     Indication: MINERAL SUPPLEMENTATION
     Dosage: DAILY DOSE 71.5 MG
     Route: 048
  5. DECADRON [Concomitant]
     Indication: DYSPNOEA EXERTIONAL
     Dosage: DAILY DOSE 4 MG
     Route: 048
  6. ATIVAN [Concomitant]
     Indication: ANXIETY
     Dosage: DAILY DOSE 0.5 MG
     Route: 048
  7. PRILOSEC [Concomitant]
     Indication: GASTROOESOPHAGEAL REFLUX DISEASE
     Dosage: DAILY DOSE 20 MG
     Route: 048
  8. HUMALOG [Concomitant]
     Indication: TYPE 2 DIABETES MELLITUS
     Dosage: UNK
     Route: 058
  9. COUMADIN [Concomitant]
     Indication: PULMONARY EMBOLISM
     Dosage: DAILY DOSE 2 MG
     Route: 048
     Dates: start: 2009
  10. AMBIEN [Concomitant]
     Indication: INSOMNIA
     Dosage: DAILY DOSE 10 MG
     Route: 048
  11. KLOR-CON M20 [Concomitant]
     Indication: MINERAL SUPPLEMENTATION
     Dosage: DAILY DOSE 20 MEQ
     Route: 048
  12. LOPRESSOR [Concomitant]
     Indication: HYPERTENSION
     Dosage: DAILY DOSE 100 MG
     Route: 048
  13. PAXIL [Concomitant]
     Indication: DEPRESSION
     Dosage: DAILY DOSE 40 MG
     Route: 048
  14. LIPITOR [Concomitant]
     Indication: BLOOD CHOLESTEROL INCREASED
     Dosage: DAILY DOSE 40 MG
     Route: 048
  15. ASPIRIN LOW [Concomitant]
     Indication: THROMBOSIS PROPHYLAXIS
     Dosage: DAILY DOSE 81 MG
     Route: 048
  16. GLUCOPHAGE [Concomitant]
     Indication: TYPE 2 DIABETES MELLITUS
     Dosage: DAILY DOSE 1000 MG
     Route: 048

REACTIONS (1)
  - Dehydration [Recovering/Resolving]
